FAERS Safety Report 25807811 (Version 1)
Quarter: 2025Q3

REPORT INFORMATION
  Report Type: Spontaneous
  Country: US (occurrence: US)
  Receive Date: 20250916
  Receipt Date: 20250916
  Transmission Date: 20251020
  Serious: Yes (Hospitalization)
  Sender: PFIZER
  Company Number: US-PFIZER INC-202500180516

PATIENT
  Age: 74 Year
  Sex: Female

DRUGS (4)
  1. TIKOSYN [Suspect]
     Active Substance: DOFETILIDE
  2. DOFETILIDE [Suspect]
     Active Substance: DOFETILIDE
  3. KETOCONAZOLE [Suspect]
     Active Substance: KETOCONAZOLE
     Indication: Skin disorder
     Route: 061
  4. KETOCONAZOLE [Suspect]
     Active Substance: KETOCONAZOLE
     Indication: Rash

REACTIONS (5)
  - Cardioversion [Unknown]
  - Drug ineffective [Unknown]
  - Contraindicated product prescribed [Unknown]
  - Skin disorder [Unknown]
  - Rash [Unknown]
